FAERS Safety Report 26013994 (Version 1)
Quarter: 2025Q4

REPORT INFORMATION
  Report Type: Spontaneous
  Country: CA (occurrence: CA)
  Receive Date: 20251108
  Receipt Date: 20251108
  Transmission Date: 20260117
  Serious: Yes (Disabling)
  Sender: AUROBINDO
  Company Number: CA-AUROBINDO-AUR-APL-2025-056209

PATIENT
  Age: 33 Year
  Sex: Female
  Weight: 89.811 kg

DRUGS (1)
  1. PREGABALIN [Suspect]
     Active Substance: PREGABALIN
     Indication: Neuralgia
     Dosage: 50 MILLIGRAM, TWO TIMES A DAY (2 EVERY 01 DAYS)
     Route: 048

REACTIONS (2)
  - Somnolence [Recovered/Resolved]
  - Loss of personal independence in daily activities [Recovered/Resolved]
